FAERS Safety Report 5013645-5 (Version None)
Quarter: 2006Q2

REPORT INFORMATION
  Report Type: 
  Country: None (occurrence: None)
  Receive Date: 20060530
  Receipt Date: 20060517
  Transmission Date: 20061013
  Serious: Yes (Hospitalization)
  Sender: FDA-Public Use
  Company Number: FR-GLAXOSMITHKLINE-B0424746A

PATIENT
  Age: 65 Year
  Sex: Male

DRUGS (15)
  1. DEROXAT [Suspect]
     Dosage: 20MG PER DAY
     Route: 048
     Dates: start: 20060403, end: 20060407
  2. ENOXAPARIN SODIUM [Suspect]
     Route: 058
  3. ORBENINE [Suspect]
     Dosage: 3G THREE TIMES PER DAY
     Route: 042
     Dates: start: 20060324, end: 20060410
  4. SOLUPRED [Concomitant]
     Route: 048
  5. MORPHINE [Concomitant]
     Route: 065
  6. CETORNAN [Concomitant]
     Route: 065
  7. FENTANYL [Concomitant]
     Route: 065
  8. MACROGOL [Concomitant]
     Route: 065
  9. AMITRIPTYLIN [Concomitant]
     Route: 065
  10. CITRATE [Concomitant]
     Route: 065
  11. TRANSULOSE [Concomitant]
     Route: 065
  12. PARACETAMOL [Concomitant]
     Route: 065
  13. INSULIN FAST-ACT [Concomitant]
     Route: 065
  14. METRONIDAZOLE [Concomitant]
     Route: 065
  15. AMINO ACID SUPPLEMENTS [Concomitant]
     Route: 065

REACTIONS (2)
  - HAEMORRHAGE [None]
  - THROMBOCYTOPENIA [None]
